FAERS Safety Report 4666313-3 (Version None)
Quarter: 2005Q2

REPORT INFORMATION
  Report Type: 
  Country: None (occurrence: None)
  Receive Date: 20050518
  Receipt Date: 20050506
  Transmission Date: 20051028
  Serious: Yes (Life-Threatening, Hospitalization)
  Sender: FDA-Public Use
  Company Number: 2005071432

PATIENT
  Age: 73 Year
  Sex: Female

DRUGS (2)
  1. MEDROL [Suspect]
     Indication: CHRONIC OBSTRUCTIVE PULMONARY DISEASE
     Dosage: 16 MG (1 D), ORAL
     Route: 048
     Dates: start: 20040101
  2. DICLOFENAC SODIUM [Suspect]
     Indication: PAIN IN EXTREMITY
     Dosage: INTRAMUSCULAR
     Route: 030
     Dates: start: 20050513

REACTIONS (1)
  - STEVENS-JOHNSON SYNDROME [None]
